FAERS Safety Report 14900501 (Version 6)
Quarter: 2019Q2

REPORT INFORMATION
  Report Type: Spontaneous
  Country: FR (occurrence: FR)
  Receive Date: 20180516
  Receipt Date: 20190606
  Transmission Date: 20190711
  Serious: Yes (Hospitalization, Other)
  Sender: FDA-Public Use
  Company Number: FR-AUROBINDO-AUR-APL-2018-025943

PATIENT

DRUGS (19)
  1. DECADRON [Suspect]
     Active Substance: DEXAMETHASONE
     Dosage: DOSAGE FORM: UNSPECIFIED
     Route: 048
     Dates: start: 20180307
  2. ALKERAN [Suspect]
     Active Substance: MELPHALAN
     Dosage: DOSAGE FORM: UNSPECIFIED
     Route: 048
     Dates: end: 20180404
  3. PREDNISONE. [Suspect]
     Active Substance: PREDNISONE
     Indication: PLASMA CELL MYELOMA
     Dosage: DOSAGE FORM: UNSPECIFIED
     Route: 048
     Dates: start: 20180108, end: 20180208
  4. ALKERAN [Suspect]
     Active Substance: MELPHALAN
     Indication: PLASMA CELL MYELOMA
     Dosage: DOSAGE FORM: UNSPECIFIED
     Route: 048
     Dates: start: 20180108, end: 20180208
  5. PREDNISONE. [Suspect]
     Active Substance: PREDNISONE
     Dosage: DOSAGE FORM: UNSPECIFIED
     Route: 048
     Dates: start: 20180108, end: 20180112
  6. VELCADE [Suspect]
     Active Substance: BORTEZOMIB
     Dosage: LYOPHILIZED POWDER, ON DAYS 1, 2, 8, 9, 15 AND 16 WITH 1 WEEK OFF OF EVERY 28 DAY CYCLE
     Route: 058
     Dates: start: 20180219, end: 20180404
  7. VELCADE [Suspect]
     Active Substance: BORTEZOMIB
     Dosage: 1.3 MILLIGRAM/SQ. METER
     Route: 058
     Dates: end: 20180404
  8. VELCADE [Suspect]
     Active Substance: BORTEZOMIB
     Dosage: 1.3 MILLIGRAM/SQ. METER, UNK
     Route: 058
     Dates: start: 20180219, end: 20181009
  9. REVLIMID [Concomitant]
     Active Substance: LENALIDOMIDE
     Indication: PLASMA CELL MYELOMA
     Dosage: DOSAGE FORM: UNSPECIFIED
     Route: 048
     Dates: start: 20180307
  10. PREDNISONE. [Suspect]
     Active Substance: PREDNISONE
     Dosage: DOSAGE FORM: UNSPECIFIED
     Route: 048
     Dates: end: 20180404
  11. ALKERAN [Suspect]
     Active Substance: MELPHALAN
     Dosage: 9 MILLIGRAM/SQ. METER, DOSAGE FORM: UNSPECIFIED
     Route: 048
     Dates: start: 20180108, end: 20180112
  12. VELCADE [Suspect]
     Active Substance: BORTEZOMIB
     Dosage: 2.6 MILLIGRAM/SQ. METER
     Route: 058
     Dates: start: 20180219, end: 20180301
  13. VELCADE [Suspect]
     Active Substance: BORTEZOMIB
     Dosage: 2.6 MILLIGRAM/SQ. METER, EVERY WEEK
     Route: 058
     Dates: start: 20180219, end: 20180307
  14. CYTOXAN [Suspect]
     Active Substance: CYCLOPHOSPHAMIDE
     Indication: PLASMA CELL MYELOMA
     Dosage: 300 MILLIGRAM/SQ. METER, EVERY WEEK, DOSAGE FORM: UNSPECIFIED
     Route: 048
     Dates: start: 20180219, end: 20180301
  15. CYTOXAN [Suspect]
     Active Substance: CYCLOPHOSPHAMIDE
     Dosage: 300 MILLIGRAM/SQ. METER, EVERY WEEK, DOSAGE FORM: UNSPECIFIED
     Route: 048
     Dates: start: 20180219, end: 20181002
  16. DECADRON [Suspect]
     Active Substance: DEXAMETHASONE
     Indication: PLASMA CELL MYELOMA
     Dosage: DOSAGE FORM: UNSPECIFIED
     Route: 048
     Dates: start: 20180219, end: 20180301
  17. DECADRON [Suspect]
     Active Substance: DEXAMETHASONE
     Dosage: 20 MILLIGRAM, DOSAGE FORM: UNSPECIFIED
     Route: 048
     Dates: start: 20180219, end: 20181010
  18. VELCADE [Suspect]
     Active Substance: BORTEZOMIB
     Indication: PLASMA CELL MYELOMA
     Dosage: DOSAGE FORM: LYOPHILIZED POWDER
     Route: 058
     Dates: start: 20180108, end: 20180208
  19. VELCADE [Suspect]
     Active Substance: BORTEZOMIB
     Dosage: 1 MILLIGRAM/SQ. METER, DOSAGE FORM: LYOPHILIZED POWDER
     Route: 058

REACTIONS (8)
  - Herpes virus infection [Recovered/Resolved]
  - Malaise [Recovered/Resolved]
  - Syncope [Recovered/Resolved]
  - Diarrhoea [Recovered/Resolved]
  - Primary amyloidosis [Not Recovered/Not Resolved]
  - Amyloidosis [Not Recovered/Not Resolved]
  - Myalgia [Recovered/Resolved]
  - Asthenia [Not Recovered/Not Resolved]

NARRATIVE: CASE EVENT DATE: 20180108
